FAERS Safety Report 15547882 (Version 1)
Quarter: 2018Q4

REPORT INFORMATION
  Report Type: Spontaneous
  Country: US (occurrence: US)
  Receive Date: 20181018
  Receipt Date: 20181018
  Transmission Date: 20190205
  Serious: No
  Sender: FDA-Public Use
  Company Number: None

PATIENT
  Age: 57 Year
  Sex: Female

DRUGS (1)
  1. VOTRIENT [Suspect]
     Active Substance: PAZOPANIB HYDROCHLORIDE
     Indication: RENAL CANCER
     Dosage: 800MG(4 TABS)
     Route: 048
     Dates: start: 20181005, end: 20181011

REACTIONS (6)
  - Hypertension [None]
  - Nausea [None]
  - Vomiting [None]
  - Swelling [None]
  - Feeling cold [None]
  - Liver disorder [None]

NARRATIVE: CASE EVENT DATE: 20181008
